FAERS Safety Report 11073503 (Version 1)
Quarter: 2015Q2

REPORT INFORMATION
  Report Type: Spontaneous
  Country: US (occurrence: US)
  Receive Date: 20150428
  Receipt Date: 20150428
  Transmission Date: 20150821
  Serious: No
  Sender: FDA-Public Use
  Company Number: US-BAYER-2015-178526

PATIENT
  Age: 85 Year
  Sex: Female
  Weight: 71 kg

DRUGS (13)
  1. AMLODIPINE W/BENAZEPRIL [Concomitant]
     Active Substance: AMLODIPINE BESYLATE\BENAZEPRIL HYDROCHLORIDE
  2. ATENOLOL. [Concomitant]
     Active Substance: ATENOLOL
  3. FENOFIBRATE. [Concomitant]
     Active Substance: FENOFIBRATE
  4. GLIMEPIRIDE. [Concomitant]
     Active Substance: GLIMEPIRIDE
  5. LEVOTHYROXINE [Concomitant]
     Active Substance: LEVOTHYROXINE
  6. SIMVASTIN [Concomitant]
     Active Substance: SIMVASTATIN
  7. WARFARIN [Concomitant]
     Active Substance: WARFARIN
  8. OXYTROL FOR WOMEN [Suspect]
     Active Substance: OXYBUTYNIN
     Indication: HYPERTONIC BLADDER
     Dosage: 1 DF, EVERY 4 DAYS
     Route: 061
     Dates: start: 201501, end: 20150420
  9. KLOR-CON [Concomitant]
     Active Substance: POTASSIUM CHLORIDE
  10. TRAMADOL [Concomitant]
     Active Substance: TRAMADOL
  11. METFORMIN [Concomitant]
     Active Substance: METFORMIN HYDROCHLORIDE
  12. NOVOLOG [Concomitant]
     Active Substance: INSULIN ASPART
  13. HYDROCHLOROTHIAZIDE. [Concomitant]
     Active Substance: HYDROCHLOROTHIAZIDE

REACTIONS (1)
  - Urticaria [Not Recovered/Not Resolved]

NARRATIVE: CASE EVENT DATE: 201502
